FAERS Safety Report 17174738 (Version 1)
Quarter: 2019Q4

REPORT INFORMATION
  Report Type: Spontaneous
  Country: US (occurrence: US)
  Receive Date: 20191126
  Receipt Date: 20191126
  Transmission Date: 20200122
  Serious: Yes (Hospitalization)
  Sender: FDA-Public Use
  Company Number: None

PATIENT
  Age: 90 Year
  Sex: Female

DRUGS (3)
  1. ADCIRCA [Concomitant]
     Active Substance: TADALAFIL
  2. TADALAFIL 20MG [Suspect]
     Active Substance: TADALAFIL
     Route: 048
     Dates: start: 20190607
  3. TADALAFIL 20MG [Suspect]
     Active Substance: TADALAFIL

REACTIONS (1)
  - Hospitalisation [None]
